FAERS Safety Report 22181953 (Version 6)
Quarter: 2024Q2

REPORT INFORMATION
  Report Type: Spontaneous
  Country: US (occurrence: US)
  Receive Date: 20230406
  Receipt Date: 20240610
  Transmission Date: 20240716
  Serious: Yes (Hospitalization)
  Sender: FDA-Public Use
  Company Number: US-PFIZER INC-202201201298

PATIENT
  Age: 76 Year
  Sex: Female

DRUGS (3)
  1. IBRANCE [Suspect]
     Active Substance: PALBOCICLIB
     Indication: Breast cancer female
     Dosage: 125 MG
  2. IBRANCE [Suspect]
     Active Substance: PALBOCICLIB
     Dosage: 100 MG, 1X/DAY, 21 DAYS THEN OFF FOR 7 DAYS
     Route: 048
  3. IBRANCE [Suspect]
     Active Substance: PALBOCICLIB
     Dosage: 1 TABLET 21D THEN 7D OFF,WITH/WITHOUT FOOD,ABOUT SAME TIME Q.D.,SWALLOW WHOLE,DON^T CHEW,CRUSH,SPLIT
     Route: 048

REACTIONS (1)
  - Feeling abnormal [Not Recovered/Not Resolved]
